FAERS Safety Report 8353158-6 (Version None)
Quarter: 2012Q2

REPORT INFORMATION
  Report Type: 
  Country: None (occurrence: None)
  Receive Date: 20120509
  Receipt Date: 20120430
  Transmission Date: 20120825
  Serious: No
  Sender: FDA-Public Use
  Company Number: 2012MA005498

PATIENT
  Age: 72 Year
  Sex: Female
  Weight: 117.9352 kg

DRUGS (2)
  1. M-ZOLE 3 COMBINATION PACK [Suspect]
     Indication: FUNGAL INFECTION
     Dosage: ;HS; VAG
     Route: 067
     Dates: start: 20120301, end: 20120301
  2. M-ZOLE 3 COMBINATION PACK [Suspect]
     Indication: FUNGAL INFECTION
     Dosage: ;HS; VAG
     Route: 067
     Dates: start: 20120301, end: 20120301

REACTIONS (5)
  - MEDICAL DEVICE COMPLICATION [None]
  - DRUG INEFFECTIVE [None]
  - GENITAL BURNING SENSATION [None]
  - PRURITUS [None]
  - GENITAL PAIN [None]
